FAERS Safety Report 22646815 (Version 1)
Quarter: 2023Q2

REPORT INFORMATION
  Report Type: Other
  Country: US (occurrence: None)
  Receive Date: 20230627
  Receipt Date: 20230627
  Transmission Date: 20230722
  Serious: No
  Sender: FDA-Public Use
  Company Number: US-ROCHE-3377414

PATIENT
  Age: 53 Year
  Sex: Female
  Weight: 83.99 kg

DRUGS (4)
  1. OCREVUS [Suspect]
     Active Substance: OCRELIZUMAB
     Indication: Relapsing-remitting multiple sclerosis
     Dosage: DATE OF TREATMENT: 06/JUN/2023
     Route: 042
  2. BETAFERON [Concomitant]
     Active Substance: INTERFERON BETA-1B
  3. TECFIDERA [Concomitant]
     Active Substance: DIMETHYL FUMARATE
  4. GABAPENTIN [Concomitant]
     Active Substance: GABAPENTIN
     Indication: Pain

REACTIONS (3)
  - COVID-19 [Recovered/Resolved]
  - Weight decreased [Recovered/Resolved]
  - Weight increased [Not Recovered/Not Resolved]

NARRATIVE: CASE EVENT DATE: 20220901
